FAERS Safety Report 6398048-3 (Version None)
Quarter: 2009Q4

REPORT INFORMATION
  Report Type: 
  Country: None (occurrence: None)
  Receive Date: 20091013
  Receipt Date: 20091006
  Transmission Date: 20100525
  Serious: Yes (Life-Threatening)
  Sender: FDA-Public Use
  Company Number: FR-ROCHE-660784

PATIENT
  Sex: Female

DRUGS (16)
  1. FUZEON [Suspect]
     Dosage: 90 MG/ML INJECTABLE SOLUTION(1 MORNING, 1 EVENING)
     Route: 058
     Dates: start: 20090505, end: 20090516
  2. BACTRIM [Suspect]
     Dosage: DOSE: 1 TABLET, FREQUENCY: DAILY (IN MORNING)
     Route: 048
     Dates: start: 20090425, end: 20090516
  3. RIFADIN [Suspect]
     Indication: DISSEMINATED TUBERCULOSIS
     Dosage: DOSE: 2 CAPSULES DAILY
     Route: 048
     Dates: start: 20090503, end: 20090516
  4. RIFADIN [Suspect]
     Dosage: RE-STARTED
     Route: 048
     Dates: start: 20090525
  5. MYAMBUTOL [Suspect]
     Indication: DISSEMINATED TUBERCULOSIS
     Dosage: DOSE: 3 TABLETS DAILY (IN MORNING)
     Route: 048
     Dates: start: 20090425, end: 20090516
  6. MYAMBUTOL [Suspect]
     Dosage: RE-STARTED
     Route: 048
     Dates: start: 20090525
  7. PIRILENE [Suspect]
     Indication: DISSEMINATED TUBERCULOSIS
     Dosage: 3 TABLETS DAILY (IN MORNING)
     Route: 048
     Dates: start: 20090425, end: 20090516
  8. RIMIFON [Suspect]
     Indication: DISSEMINATED TUBERCULOSIS
     Dosage: 2 TABLETS DAILY (IN MORNING)
     Route: 048
     Dates: start: 20090425, end: 20090516
  9. SUSTIVA [Suspect]
     Dosage: 1 TABLET DAILY (IN EVENING)
     Route: 065
     Dates: start: 20090505, end: 20090516
  10. TRUVADA [Suspect]
     Dosage: 200 MG/245 MG TABLET, DOSE: 1 TABLET DAILY(IN EVENING)
     Route: 048
     Dates: start: 20090505, end: 20090516
  11. SINGULAIR [Suspect]
     Dosage: 1 TABLET DAILY
     Route: 048
     Dates: start: 20090511, end: 20090516
  12. IMOVANE [Suspect]
     Indication: INSOMNIA
     Dosage: 1 TABLET DAILY (IN EVENING)
     Route: 065
     Dates: start: 20090427, end: 20090516
  13. ANSATIPINE [Concomitant]
     Indication: TUBERCULOSIS
     Dosage: ANSATIPINE 150, 1 IN MORNING
     Dates: start: 20090425, end: 20090503
  14. ZACLAR [Concomitant]
     Indication: TUBERCULOSIS
     Dates: start: 20090425, end: 20090503
  15. IZILOX [Concomitant]
  16. IZILOX [Concomitant]
     Dates: start: 20090525

REACTIONS (1)
  - HEPATITIS FULMINANT [None]
